FAERS Safety Report 8877988 (Version 1)
Quarter: 2012Q4

REPORT INFORMATION
  Report Type: 
  Country: US (occurrence: US)
  Receive Date: 20121025
  Receipt Date: 20121025
  Transmission Date: 20130627
  Serious: No
  Sender: FDA-Public Use
  Company Number: US-AMGEN-USASP2012020766

PATIENT
  Sex: Female
  Weight: 59.41 kg

DRUGS (4)
  1. ENBREL [Suspect]
     Indication: PRODUCT USED FOR UNKNOWN INDICATION
     Dosage: 50 mg, qwk
     Route: 058
  2. OXYCODONE/APAP                     /00867901/ [Concomitant]
  3. DIOVAN [Concomitant]
     Dosage: 40 mg, UNK
  4. MULTIVITAMIN                       /00097801/ [Concomitant]

REACTIONS (3)
  - Injection site discharge [Unknown]
  - Scratch [Unknown]
  - Injection site haemorrhage [Unknown]
